FAERS Safety Report 21839242 (Version 1)
Quarter: 2023Q1

REPORT INFORMATION
  Report Type: Spontaneous
  Country: US (occurrence: None)
  Receive Date: 20230107
  Receipt Date: 20230107
  Transmission Date: 20230417
  Serious: No
  Sender: FDA-Public Use
  Company Number: None

PATIENT
  Age: 37 Year
  Sex: Female

DRUGS (1)
  1. ZIPRASIDONE HYDROCHLORIDE [Suspect]
     Active Substance: ZIPRASIDONE HYDROCHLORIDE
     Indication: Depression
     Dosage: 60 MG BID PO
     Dates: start: 20200402, end: 20220808

REACTIONS (2)
  - Galactorrhoea [None]
  - Blood prolactin increased [None]

NARRATIVE: CASE EVENT DATE: 20220719
